FAERS Safety Report 7704552-5 (Version None)
Quarter: 2011Q3

REPORT INFORMATION
  Report Type: 
  Country: None (occurrence: None)
  Receive Date: 20110823
  Receipt Date: 20110811
  Transmission Date: 20111222
  Serious: Yes (Hospitalization)
  Sender: FDA-Public Use
  Company Number: US-GLAXOSMITHKLINE-A0873904A

PATIENT
  Age: 41 Year
  Sex: Female

DRUGS (10)
  1. TRIAZOLAM [Concomitant]
  2. METFORMIN HCL [Concomitant]
  3. ENALAPRIL MALEATE [Concomitant]
  4. NEURONTIN [Concomitant]
  5. GLYBURIDE [Concomitant]
  6. NIFEDIPINE [Concomitant]
  7. NEXIUM [Concomitant]
  8. AVANDIA [Suspect]
     Indication: DIABETES MELLITUS
     Dosage: 8MG PER DAY
     Route: 048
     Dates: start: 20030101, end: 20090301
  9. HYDROCODONE BITARTRATE [Concomitant]
  10. FEXOFENADINE [Concomitant]

REACTIONS (1)
  - CEREBROVASCULAR ACCIDENT [None]
